FAERS Safety Report 21469080 (Version 4)
Quarter: 2023Q2

REPORT INFORMATION
  Report Type: Spontaneous
  Country: US (occurrence: US)
  Receive Date: 20221018
  Receipt Date: 20230424
  Transmission Date: 20230721
  Serious: No
  Sender: FDA-Public Use
  Company Number: IN-LUPIN PHARMACEUTICALS INC.-2022-11879

PATIENT

DRUGS (2)
  1. CEFDINIR [Suspect]
     Active Substance: CEFDINIR
     Indication: Product used for unknown indication
     Dosage: UNK
     Route: 065
  2. CEFDINIR [Suspect]
     Active Substance: CEFDINIR
     Dosage: 300 MILLIGRAM
     Route: 065
     Dates: start: 20220202

REACTIONS (4)
  - Abdominal discomfort [Unknown]
  - Dysbiosis [Unknown]
  - Weight decreased [Unknown]
  - Physical product label issue [Unknown]
